FAERS Safety Report 6331676-X (Version None)
Quarter: 2009Q3

REPORT INFORMATION
  Report Type: 
  Country: None (occurrence: None)
  Receive Date: 20090827
  Receipt Date: 20081030
  Transmission Date: 20100115
  Serious: Yes (Death)
  Sender: FDA-Public Use
  Company Number: PHEH2008US11607

PATIENT

DRUGS (2)
  1. TOBI [Suspect]
     Indication: PROPHYLAXIS
     Dosage: 300 MG, BID
     Dates: start: 20080101
  2. PULMOZYME [Concomitant]

REACTIONS (3)
  - DISEASE PROGRESSION [None]
  - GASTROINTESTINAL DISORDER [None]
  - LUNG DISORDER [None]
